FAERS Safety Report 9039549 (Version 1)
Quarter: 2013Q2

REPORT INFORMATION
  Report Type: Spontaneous
  Country: US (occurrence: None)
  Receive Date: 20130123
  Receipt Date: 20130123
  Transmission Date: 20140414
  Serious: Yes (Hospitalization)
  Sender: FDA-Public Use
  Company Number: None

PATIENT
  Age: 54 Year
  Sex: Female
  Weight: 55.38 kg

DRUGS (11)
  1. GEMCITABINE [Suspect]
     Indication: CHOLANGIOCARCINOMA
     Dosage: EVERY 2 WKS
     Route: 042
     Dates: start: 20120820, end: 20120826
  2. OXALIPLATIN [Suspect]
     Indication: CHOLANGIOCARCINOMA
     Dosage: EVERY 2 WKS
     Route: 042
     Dates: start: 20120821, end: 20120826
  3. ONDANSETRON [Concomitant]
  4. PROMETHAZINE [Concomitant]
  5. DOCUSATE SODIUM [Concomitant]
  6. SENNA [Concomitant]
  7. CLINDAMYCIN 1 % [Concomitant]
  8. AMITRIPTYLINE [Concomitant]
  9. JUICE PLUS 4 CAPSULES [Concomitant]
  10. MILK THISTLE 2 CAPSULES [Concomitant]
  11. LORAZEPAM [Concomitant]

REACTIONS (3)
  - Nausea [None]
  - Back pain [None]
  - Pain in extremity [None]
